FAERS Safety Report 13127128 (Version 1)
Quarter: 2017Q1

REPORT INFORMATION
  Report Type: Spontaneous
  Country: US (occurrence: US)
  Receive Date: 20170118
  Receipt Date: 20170118
  Transmission Date: 20170428
  Serious: No
  Sender: FDA-Public Use
  Company Number: US-ROCHE-1852245

PATIENT
  Sex: Female

DRUGS (4)
  1. REMICADE [Concomitant]
     Active Substance: INFLIXIMAB
     Route: 065
     Dates: end: 201107
  2. METHOTREXATE. [Concomitant]
     Active Substance: METHOTREXATE
  3. SIMPONI [Concomitant]
     Active Substance: GOLIMUMAB
     Route: 065
     Dates: start: 201503, end: 201605
  4. RITUXAN [Suspect]
     Active Substance: RITUXIMAB
     Indication: RHEUMATOID ARTHRITIS
     Route: 065
     Dates: start: 201108, end: 201412

REACTIONS (2)
  - Drug ineffective [Unknown]
  - No adverse event [Unknown]
